FAERS Safety Report 5008981-2 (Version None)
Quarter: 2006Q2

REPORT INFORMATION
  Report Type: 
  Country: None (occurrence: None)
  Receive Date: 20060519
  Receipt Date: 20060510
  Transmission Date: 20061013
  Serious: Yes (Death, Life-Threatening)
  Sender: FDA-Public Use
  Company Number: FRWYE615310MAY06

PATIENT
  Age: 82 Year
  Sex: Female

DRUGS (2)
  1. RAPAMUNE [Suspect]
     Indication: ACUTE MYELOID LEUKAEMIA
     Dosage: 4 MG TOTAL DAILY, ORAL
     Route: 048
     Dates: start: 20050821, end: 20050905
  2. CYTARABINE [Suspect]
     Indication: ACUTE LYMPHOCYTIC LEUKAEMIA
     Dosage: 26 MG 1X PER 1 DAY, SC
     Route: 058
     Dates: start: 20050817, end: 20050826

REACTIONS (6)
  - BODY TEMPERATURE INCREASED [None]
  - BONE MARROW FAILURE [None]
  - CELLULITIS [None]
  - INFECTION [None]
  - MYALGIA [None]
  - TOOTH ABSCESS [None]
